FAERS Safety Report 10778639 (Version 4)
Quarter: 2015Q1

REPORT INFORMATION
  Report Type: Spontaneous
  Country: JP (occurrence: JP)
  Receive Date: 20150210
  Receipt Date: 20150305
  Transmission Date: 20150721
  Serious: Yes (Life-Threatening)
  Sender: FDA-Public Use
  Company Number: JP-009507513-1502JPN003106

PATIENT
  Age: 49 Year
  Sex: Male

DRUGS (6)
  1. GRANISETRON HYDROCHLORIDE. [Concomitant]
     Active Substance: GRANISETRON HYDROCHLORIDE
     Dosage: 1 MG PER DAY, DAY 1
     Dates: start: 20150120, end: 20150120
  2. AVAPRO [Concomitant]
     Active Substance: IRBESARTAN
     Dosage: UNK
     Route: 048
     Dates: start: 20150114
  3. GEMCITABINE [Concomitant]
     Active Substance: GEMCITABINE\GEMCITABINE HYDROCHLORIDE
     Dosage: DAY 1, 2G PER DAY,
     Dates: start: 20150120, end: 20150120
  4. DEXART [Suspect]
     Active Substance: DEXAMETHASONE SODIUM PHOSPHATE
     Indication: PROPHYLAXIS OF NAUSEA AND VOMITING
     Dosage: DISSOLVED IN 100 ML OF SOLUTION, DOSE UNSPECIFIED, DAY 12/ DAILY DOSE: 6.6 MG
     Route: 041
     Dates: start: 20150121
  5. ALOXI [Suspect]
     Active Substance: PALONOSETRON HYDROCHLORIDE
     Indication: PROPHYLAXIS OF NAUSEA AND VOMITING
     Dosage: 0.75 MG PER DAY, DAY 2
     Route: 041
     Dates: start: 20150121
  6. FOSAPREPITANT DIMEGLUMINE [Suspect]
     Active Substance: FOSAPREPITANT DIMEGLUMINE
     Indication: PROPHYLAXIS OF NAUSEA AND VOMITING
     Dosage: 150 MG, ONCE A DAY, DAY 2
     Route: 041
     Dates: start: 20150121, end: 20150121

REACTIONS (2)
  - Anaphylactic shock [Recovered/Resolved]
  - Injection site swelling [Unknown]

NARRATIVE: CASE EVENT DATE: 20150121
